FAERS Safety Report 7834068-7 (Version None)
Quarter: 2011Q4

REPORT INFORMATION
  Report Type: 
  Country: None (occurrence: None)
  Receive Date: 20111024
  Receipt Date: 20111024
  Transmission Date: 20120403
  Serious: Yes (Other)
  Sender: FDA-Public Use
  Company Number: None

PATIENT
  Age: 51 Year
  Sex: Female
  Weight: 68.038 kg

DRUGS (1)
  1. CHANTIX [Suspect]
     Indication: SMOKING CESSATION THERAPY
     Dosage: 1 PILL
     Route: 048
     Dates: start: 20110610, end: 20110709

REACTIONS (11)
  - DEPRESSION [None]
  - PAIN IN EXTREMITY [None]
  - ARTHRALGIA [None]
  - DYSPHONIA [None]
  - PYREXIA [None]
  - ASTHENIA [None]
  - BONE PAIN [None]
  - BACK PAIN [None]
  - FIBROMYALGIA [None]
  - MUSCULOSKELETAL PAIN [None]
  - OROPHARYNGEAL PAIN [None]
